FAERS Safety Report 10152933 (Version 1)
Quarter: 2014Q2

REPORT INFORMATION
  Report Type: Spontaneous
  Country: LV (occurrence: LV)
  Receive Date: 20140505
  Receipt Date: 20140505
  Transmission Date: 20141212
  Serious: Yes (Hospitalization)
  Sender: FDA-Public Use
  Company Number: LV-GLAXOSMITHKLINE-B0990089A

PATIENT
  Age: 77 Year
  Sex: Female
  Weight: 67 kg

DRUGS (1)
  1. VOTRIENT [Suspect]
     Indication: RENAL CANCER METASTATIC
     Route: 048
     Dates: start: 20121219

REACTIONS (6)
  - Gastric ulcer [Recovered/Resolved]
  - Gastric ulcer haemorrhage [Recovered/Resolved]
  - Pyoderma [Recovered/Resolved]
  - Liver function test abnormal [Recovered/Resolved]
  - Thrombocytopenia [Recovered/Resolved]
  - Blood thyroid stimulating hormone increased [Recovered/Resolved]
